FAERS Safety Report 15248083 (Version 1)
Quarter: 2018Q3

REPORT INFORMATION
  Report Type: Spontaneous
  Country: US (occurrence: US)
  Receive Date: 20180714
  Receipt Date: 20180714
  Transmission Date: 20181010
  Serious: No
  Sender: FDA-Public Use
  Company Number: None

PATIENT
  Age: 66 Year
  Sex: Female
  Weight: 62.1 kg

DRUGS (4)
  1. OMEPRAZOLE 20 MG [Suspect]
     Active Substance: OMEPRAZOLE
     Indication: GASTROOESOPHAGEAL REFLUX DISEASE
     Dosage: ?          QUANTITY:1 CAPSULE(S);?
     Route: 048
     Dates: start: 20180627, end: 20180713
  2. CALCIUM [Concomitant]
     Active Substance: CALCIUM
  3. MELOXICAM. [Concomitant]
     Active Substance: MELOXICAM
  4. VITAMIN D [Concomitant]
     Active Substance: CHOLECALCIFEROL

REACTIONS (11)
  - Pyrexia [None]
  - Malaise [None]
  - Nausea [None]
  - Abdominal pain upper [None]
  - Influenza [None]
  - Impaired work ability [None]
  - Weight decreased [None]
  - Fatigue [None]
  - Eructation [None]
  - Myalgia [None]
  - Decreased appetite [None]

NARRATIVE: CASE EVENT DATE: 20180713
